FAERS Safety Report 8321244-2 (Version None)
Quarter: 2012Q2

REPORT INFORMATION
  Report Type: 
  Country: None (occurrence: None)
  Receive Date: 20120430
  Receipt Date: 20120420
  Transmission Date: 20120825
  Serious: Yes (Hospitalization)
  Sender: FDA-Public Use
  Company Number: JP-BRISTOL-MYERS SQUIBB COMPANY-14755243

PATIENT
  Age: 81 Year
  Sex: Male
  Weight: 53 kg

DRUGS (8)
  1. SEROTONE [Concomitant]
     Indication: ANTIEMETIC SUPPORTIVE CARE
     Route: 042
     Dates: start: 20090529, end: 20090605
  2. URSO 250 [Concomitant]
     Dosage: TABS
     Route: 048
     Dates: start: 20090529, end: 20090609
  3. ERBITUX [Suspect]
     Indication: COLON CANCER
     Dosage: 400MG 1/1 WEEK:05JUN09
     Route: 042
     Dates: start: 20090529, end: 20090605
  4. IRINOTECAN HCL [Suspect]
     Indication: COLON CANCER
     Route: 042
     Dates: start: 20090529, end: 20090605
  5. POLARAMINE [Concomitant]
     Indication: PREMEDICATION
     Route: 042
     Dates: start: 20090529, end: 20090605
  6. PRIMPERAN TAB [Concomitant]
     Dosage: TABS
     Route: 048
     Dates: start: 20090529, end: 20090609
  7. SODIUM BICARBONATE [Concomitant]
     Route: 048
     Dates: start: 20090529, end: 20090609
  8. DECADRON [Concomitant]
     Indication: PREMEDICATION
     Route: 042
     Dates: start: 20090529, end: 20090605

REACTIONS (2)
  - CEREBELLAR INFARCTION [None]
  - DIARRHOEA [None]
